FAERS Safety Report 9606394 (Version 1)
Quarter: 2013Q4

REPORT INFORMATION
  Report Type: Spontaneous
  Country: US (occurrence: US)
  Receive Date: 20131008
  Receipt Date: 20131008
  Transmission Date: 20140711
  Serious: No
  Sender: FDA-Public Use
  Company Number: US-AMGEN-USASP2013052331

PATIENT
  Age: 73 Year
  Sex: Female

DRUGS (8)
  1. PROLIA [Suspect]
     Indication: OSTEOPOROSIS
     Dosage: UNK
     Route: 065
     Dates: start: 20120806
  2. PROLIA [Suspect]
     Dosage: UNK
     Route: 065
     Dates: start: 20130314
  3. CELEBREX [Concomitant]
     Dosage: 100 MG, QD
  4. SERTRALINE [Concomitant]
     Dosage: 50 MG, QD
  5. ZETIA [Concomitant]
     Dosage: 10 MG, QD
  6. OMEPRAZOLE [Concomitant]
     Dosage: 20 MG, QD
  7. AMITRIPTYLINE [Concomitant]
     Dosage: 10 MG, QD
  8. VITAMIN D                          /00107901/ [Concomitant]
     Dosage: 50000 IU, QWK

REACTIONS (5)
  - Arthritis [Unknown]
  - Tooth disorder [Unknown]
  - Headache [Recovered/Resolved]
  - Arthralgia [Unknown]
  - Bone pain [Unknown]
